FAERS Safety Report 14226329 (Version 1)
Quarter: 2017Q4

REPORT INFORMATION
  Report Type: Spontaneous
  Country: CA (occurrence: CA)
  Receive Date: 20171127
  Receipt Date: 20171127
  Transmission Date: 20180321
  Serious: Yes (Hospitalization)
  Sender: FDA-Public Use
  Company Number: CA-BAYER-2017-221483

PATIENT
  Age: 85 Year
  Sex: Female

DRUGS (1)
  1. ASPIRIN 81 MG [Suspect]
     Active Substance: ASPIRIN
     Indication: MYOCARDIAL INFARCTION
     Dosage: UNK

REACTIONS (3)
  - Hospitalisation [None]
  - Product use in unapproved indication [None]
  - Expired product administered [None]

NARRATIVE: CASE EVENT DATE: 2017
